FAERS Safety Report 4632222-9 (Version None)
Quarter: 2005Q2

REPORT INFORMATION
  Report Type: 
  Country: None (occurrence: None)
  Receive Date: 20050411
  Receipt Date: 20040728
  Transmission Date: 20051028
  Serious: No
  Sender: FDA-Public Use
  Company Number: US-GLAXOSMITHKLINE-A0520088A

PATIENT

DRUGS (2)
  1. TIMENTIN [Suspect]
     Indication: ILL-DEFINED DISORDER
     Route: 042
  2. NO CONCURRENT MEDICATION [Concomitant]

REACTIONS (1)
  - EXTRAVASATION [None]
